FAERS Safety Report 15543634 (Version 1)
Quarter: 2018Q4

REPORT INFORMATION
  Report Type: Spontaneous
  Country: US (occurrence: US)
  Receive Date: 20181023
  Receipt Date: 20181023
  Transmission Date: 20190205
  Serious: Yes (Other)
  Sender: FDA-Public Use
  Company Number: US-APOPHARMA USA, INC.-2018AP022840

PATIENT
  Age: 4 Month
  Sex: Female

DRUGS (2)
  1. ALKERAN [Suspect]
     Active Substance: MELPHALAN
     Indication: RETINOBLASTOMA
     Dosage: 20 ?G, OTHER
     Route: 050
  2. ALKERAN [Suspect]
     Active Substance: MELPHALAN
     Indication: VITREOUS FLOATERS

REACTIONS (1)
  - Retinal pigment epitheliopathy [Recovered/Resolved]
